FAERS Safety Report 7587252-4 (Version None)
Quarter: 2011Q3

REPORT INFORMATION
  Report Type: 
  Country: None (occurrence: None)
  Receive Date: 20110701
  Receipt Date: 20110622
  Transmission Date: 20111222
  Serious: Yes (Hospitalization)
  Sender: FDA-Public Use
  Company Number: US-ROCHE-786819

PATIENT
  Sex: Female
  Weight: 50 kg

DRUGS (18)
  1. GABAPENTIN [Concomitant]
  2. VICODIN [Concomitant]
  3. VITAMIN D [Concomitant]
  4. MULTI-VITAMIN [Concomitant]
  5. ARICEPT [Concomitant]
  6. LORATADINE [Concomitant]
  7. ASPIRIN [Concomitant]
  8. CALCIUM CARBONATE [Concomitant]
  9. PRILOSEC [Concomitant]
  10. SIMVASTATIN [Concomitant]
  11. TYLENOL-500 [Concomitant]
  12. NASONEX [Concomitant]
  13. PATANOL [Concomitant]
     Dosage: PATANLOL
  14. BONIVA [Suspect]
     Indication: OSTEOPOROSIS
     Route: 048
  15. TRAZODONE HCL [Concomitant]
  16. LORAZEPAM [Concomitant]
  17. ZOLOFT [Concomitant]
  18. VITAMIN D [Concomitant]

REACTIONS (3)
  - CONTUSION [None]
  - BLOOD CALCIUM DECREASED [None]
  - FALL [None]
